FAERS Safety Report 5674104-X (Version None)
Quarter: 2008Q1

REPORT INFORMATION
  Report Type: 
  Country: None (occurrence: None)
  Receive Date: 20080320
  Receipt Date: 20080314
  Transmission Date: 20080703
  Serious: Yes (Other)
  Sender: FDA-Public Use
  Company Number: FR-JNJFOC-20080303393

PATIENT
  Sex: Male
  Weight: 10 kg

DRUGS (7)
  1. EPITOMAX [Suspect]
     Route: 048
     Dates: start: 20080224, end: 20080227
  2. EPITOMAX [Suspect]
     Route: 048
     Dates: start: 20080224, end: 20080227
  3. EPITOMAX [Suspect]
     Indication: STATUS EPILEPTICUS
     Route: 048
     Dates: start: 20080224, end: 20080227
  4. TEGRETOL [Suspect]
     Dosage: 100 MG IN THE MORNING- 150 MG IN THE EVENING
     Route: 048
  5. TEGRETOL [Suspect]
     Indication: ENCEPHALOPATHY
     Route: 048
  6. RIVOTRIL [Concomitant]
     Indication: ENCEPHALOPATHY
  7. GARDENAL [Concomitant]
     Indication: ENCEPHALOPATHY

REACTIONS (4)
  - ALANINE AMINOTRANSFERASE INCREASED [None]
  - ASPARTATE AMINOTRANSFERASE INCREASED [None]
  - GAMMA-GLUTAMYLTRANSFERASE INCREASED [None]
  - PROTHROMBIN TIME RATIO DECREASED [None]
